FAERS Safety Report 5426836-6 (Version None)
Quarter: 2007Q3

REPORT INFORMATION
  Report Type: 
  Country: None (occurrence: None)
  Receive Date: 20070827
  Receipt Date: 20061127
  Transmission Date: 20080115
  Serious: No
  Sender: FDA-Public Use
  Company Number: US-BOEHRINGER INGELHEIM PHARMACEUTICALS, INC.-2006-BP-13861BP

PATIENT
  Sex: Female

DRUGS (4)
  1. CATAPRES-TTS-1 [Suspect]
     Indication: HYPERTENSION
     Route: 061
     Dates: start: 20060728, end: 20060828
  2. CATAPRES-TTS-1 [Suspect]
     Indication: HOT FLUSH
  3. BENICAR [Concomitant]
     Indication: HYPERTENSION
  4. TRAZODONE HCL [Concomitant]
     Indication: INSOMNIA

REACTIONS (1)
  - APPLICATION SITE DISCOLOURATION [None]
